FAERS Safety Report 23944386 (Version 1)
Quarter: 2024Q2

REPORT INFORMATION
  Report Type: Spontaneous
  Country: RO (occurrence: None)
  Receive Date: 20240606
  Receipt Date: 20240606
  Transmission Date: 20240715
  Serious: Yes (Other)
  Sender: FDA-Public Use
  Company Number: RO-ROCHE-3575733

PATIENT
  Age: 58 Year
  Weight: 74 kg

DRUGS (11)
  1. ATEZOLIZUMAB [Suspect]
     Active Substance: ATEZOLIZUMAB
     Indication: Hepatocellular carcinoma
     Route: 065
  2. BEVACIZUMAB [Suspect]
     Active Substance: BEVACIZUMAB
     Indication: Hepatocellular carcinoma
     Route: 065
  3. TREMELIMUMAB [Concomitant]
     Active Substance: TREMELIMUMAB
  4. DURVALUMAB [Concomitant]
     Active Substance: DURVALUMAB
  5. SORAFENIB [Concomitant]
     Active Substance: SORAFENIB
  6. LENVATINIB [Concomitant]
     Active Substance: LENVATINIB
  7. DURVALUMAB [Concomitant]
     Active Substance: DURVALUMAB
  8. URSODIOL [Concomitant]
     Active Substance: URSODIOL
  9. TRAMADOL [Concomitant]
     Active Substance: TRAMADOL\TRAMADOL HYDROCHLORIDE
  10. DEXAMETHASONE [Concomitant]
     Active Substance: DEXAMETHASONE
  11. METHYLPREDNISOLONE [Concomitant]
     Active Substance: METHYLPREDNISOLONE

REACTIONS (1)
  - Hepatic function abnormal [Unknown]

NARRATIVE: CASE EVENT DATE: 20240201
